FAERS Safety Report 9416106 (Version 1)
Quarter: 2013Q3

REPORT INFORMATION
  Report Type: Spontaneous
  Country: US (occurrence: None)
  Receive Date: 20130723
  Receipt Date: 20130723
  Transmission Date: 20140515
  Serious: Yes (Other)
  Sender: FDA-Public Use
  Company Number: None

PATIENT
  Age: 53 Year
  Sex: Female

DRUGS (3)
  1. TECFIDERA [Suspect]
     Indication: RELAPSING-REMITTING MULTIPLE SCLEROSIS
     Route: 048
     Dates: start: 20130627, end: 20130719
  2. GABAPENTIN [Concomitant]
  3. CYCLOBENZAPRINE [Concomitant]

REACTIONS (4)
  - Flushing [None]
  - Rash [None]
  - Abdominal pain [None]
  - Abdominal pain [None]
